FAERS Safety Report 22328588 (Version 3)
Quarter: 2023Q4

REPORT INFORMATION
  Report Type: Other
  Country: AU (occurrence: AU)
  Receive Date: 20230517
  Receipt Date: 20231107
  Transmission Date: 20240110
  Serious: Yes (Other)
  Sender: FDA-Public Use
  Company Number: AU-TOLMAR, INC.-23AU040499

PATIENT
  Sex: Male

DRUGS (2)
  1. ELIGARD [Suspect]
     Active Substance: LEUPROLIDE ACETATE
     Indication: Prostate cancer
     Dosage: 22.5 MILLIGRAM, Q 3 MONTH
  2. ELIGARD [Suspect]
     Active Substance: LEUPROLIDE ACETATE
     Indication: Prostate cancer
     Dosage: UNK

REACTIONS (6)
  - Rheumatoid arthritis [Unknown]
  - Fall [Unknown]
  - Eye contusion [Unknown]
  - Urinary tract infection [Recovering/Resolving]
  - Arthralgia [Unknown]
  - Hyperhidrosis [Not Recovered/Not Resolved]
